FAERS Safety Report 7389835-3 (Version None)
Quarter: 2011Q1

REPORT INFORMATION
  Report Type: 
  Country: None (occurrence: None)
  Receive Date: 20110324
  Receipt Date: 20110310
  Transmission Date: 20110831
  Serious: Yes (Other)
  Sender: FDA-Public Use
  Company Number: MC201100099

PATIENT

DRUGS (4)
  1. ASPIRIN [Concomitant]
  2. ANGIOMAX, ANGIOX (BIVALIRUIN) INJECTION [Suspect]
     Indication: PERCUTANEOUS CORONARY INTERVENTION
     Dosage: 0.75 MG/KG,BOLUS,RAD ACCESS PCI ; 1.75 MG/KG,HR, RAD ACCESS PCI
     Route: 040
  3. CLOPIDOGREL [Concomitant]
  4. HEPARIN [Concomitant]

REACTIONS (1)
  - ARTERIAL OCCLUSIVE DISEASE [None]
